FAERS Safety Report 9075013 (Version 1)
Quarter: 2013Q1

REPORT INFORMATION
  Report Type: Report from Study
  Country: US (occurrence: US)
  Receive Date: 20130131
  Receipt Date: 20130131
  Transmission Date: 20140127
  Serious: No
  Sender: FDA-Public Use
  Company Number: US-ABBOTT-12P-163-1005779-00

PATIENT
  Age: 53 Year
  Sex: Female
  Weight: 99.88 kg

DRUGS (17)
  1. HUMIRA [Suspect]
     Indication: RHEUMATOID ARTHRITIS
     Dates: start: 20121015
  2. CARAFATE [Concomitant]
     Indication: GASTROOESOPHAGEAL REFLUX DISEASE
  3. MIRALAX [Concomitant]
     Indication: CONSTIPATION
  4. BENICAR [Concomitant]
     Indication: HYPERTENSION
  5. HYDROCHLOROT [Concomitant]
     Indication: HYPERTENSION
  6. SAVELLA [Concomitant]
     Indication: FIBROMYALGIA
  7. METFORMIN [Concomitant]
     Indication: DIABETES MELLITUS
  8. FOLIC ACID [Concomitant]
     Indication: PROPHYLAXIS
  9. METHOTREXATE [Concomitant]
     Indication: RHEUMATOID ARTHRITIS
  10. LOVAZA [Concomitant]
     Indication: BLOOD CHOLESTEROL INCREASED
  11. CITRACAL [Concomitant]
     Indication: SUPPLEMENTATION THERAPY
  12. VITAMIN D [Concomitant]
     Indication: VITAMIN SUPPLEMENTATION
  13. PLAQUENIL [Concomitant]
     Indication: RHEUMATOID ARTHRITIS
  14. SYNTHROID [Concomitant]
     Indication: HYPOTHYROIDISM
  15. RANITIDINE [Concomitant]
     Indication: GASTROOESOPHAGEAL REFLUX DISEASE
  16. METROGEL [Concomitant]
     Indication: ROSACEA
  17. CLINDAMYCIN PHOSPHATE SOLUTION [Concomitant]
     Indication: ACNE
     Route: 061

REACTIONS (2)
  - Nasopharyngitis [Not Recovered/Not Resolved]
  - Injection site pain [Not Recovered/Not Resolved]
